FAERS Safety Report 12366361 (Version 1)
Quarter: 2016Q2

REPORT INFORMATION
  Report Type: Spontaneous
  Country: US (occurrence: US)
  Receive Date: 20160513
  Receipt Date: 20160513
  Transmission Date: 20160815
  Serious: No
  Sender: FDA-Public Use
  Company Number: US-009507513-1605USA004997

PATIENT
  Sex: Female

DRUGS (1)
  1. NEXPLANON [Suspect]
     Active Substance: ETONOGESTREL
     Dosage: UNK
     Route: 059
     Dates: start: 20160121, end: 20160505

REACTIONS (5)
  - Implant site fibrosis [Unknown]
  - Menstruation irregular [Unknown]
  - Device breakage [Not Recovered/Not Resolved]
  - Dysmenorrhoea [Unknown]
  - Product quality issue [Unknown]
